FAERS Safety Report 7679610-4 (Version None)
Quarter: 2011Q3

REPORT INFORMATION
  Report Type: 
  Country: None (occurrence: None)
  Receive Date: 20110812
  Receipt Date: 20110801
  Transmission Date: 20111222
  Serious: Yes (Other)
  Sender: FDA-Public Use
  Company Number: DE-UCBSA-038157

PATIENT
  Age: 7 Year
  Sex: Female

DRUGS (1)
  1. VIMPAT [Suspect]
     Route: 048
     Dates: start: 20100101

REACTIONS (2)
  - GRAND MAL CONVULSION [None]
  - CONVULSION [None]
